FAERS Safety Report 16598618 (Version 2)
Quarter: 2019Q3

REPORT INFORMATION
  Report Type: Spontaneous
  Country: US (occurrence: US)
  Receive Date: 20190719
  Receipt Date: 20190814
  Transmission Date: 20191004
  Serious: No
  Sender: FDA-Public Use
  Company Number: US-ASTRAZENECA-2019SE90671

PATIENT
  Age: 29520 Day
  Sex: Female
  Weight: 75.8 kg

DRUGS (4)
  1. SYMBICORT [Concomitant]
     Active Substance: BUDESONIDE\FORMOTEROL FUMARATE DIHYDRATE
     Dosage: UNKNOWN UNKNOWN
     Route: 055
  2. TUDORZA PRESSAIR [Suspect]
     Active Substance: ACLIDINIUM BROMIDE
     Indication: CHRONIC OBSTRUCTIVE PULMONARY DISEASE
     Route: 055
     Dates: start: 20190514
  3. HUMALOG [Concomitant]
     Active Substance: INSULIN LISPRO
     Indication: DIABETES MELLITUS
     Dosage: EPENDS ON THE AMOUNT OF CARBS INGESTED, AS REQUIRED
     Route: 065
  4. LEVIMER [Concomitant]
     Indication: DIABETES MELLITUS
     Dosage: 16 UNITS TWO TIMES A DAY
     Route: 065

REACTIONS (5)
  - Incorrect dose administered [Unknown]
  - Taste disorder [Recovered/Resolved]
  - Intentional product misuse [Recovered/Resolved]
  - Product quality issue [Unknown]
  - Device issue [Unknown]

NARRATIVE: CASE EVENT DATE: 20190619
